FAERS Safety Report 23781382 (Version 6)
Quarter: 2024Q3

REPORT INFORMATION
  Report Type: Spontaneous
  Country: US (occurrence: US)
  Receive Date: 20240425
  Receipt Date: 20240828
  Transmission Date: 20241017
  Serious: Yes (Hospitalization, Other)
  Sender: NOVARTIS
  Company Number: US-002147023-NVSC2024US087684

PATIENT
  Age: 54 Year
  Sex: Male
  Weight: 76.8 kg

DRUGS (3)
  1. PLUVICTO [Suspect]
     Active Substance: LUTETIUM LU-177 VIPIVOTIDE TETRAXETAN
     Indication: Product used for unknown indication
     Dosage: UNK
     Route: 065
  2. ELTROMBOPAG [Suspect]
     Active Substance: ELTROMBOPAG
     Indication: Product used for unknown indication
     Dosage: 480 UG
     Route: 065
     Dates: start: 202406, end: 20240812
  3. ZARXIO [Concomitant]
     Active Substance: FILGRASTIM-SNDZ
     Indication: Product used for unknown indication
     Dosage: UNK
     Route: 065

REACTIONS (13)
  - Pancytopenia [Unknown]
  - Gingival bleeding [Unknown]
  - Dizziness [Unknown]
  - Fatigue [Unknown]
  - Platelet count decreased [Unknown]
  - Pallor [Unknown]
  - Asthenia [Unknown]
  - Nausea [Unknown]
  - General physical health deterioration [Recovering/Resolving]
  - Wheezing [Unknown]
  - Flank pain [Unknown]
  - Ill-defined disorder [Unknown]
  - Mental status changes [Unknown]

NARRATIVE: CASE EVENT DATE: 20240424
